FAERS Safety Report 18722820 (Version 1)
Quarter: 2021Q1

REPORT INFORMATION
  Report Type: Spontaneous
  Country: US (occurrence: US)
  Receive Date: 20210111
  Receipt Date: 20210111
  Transmission Date: 20210419
  Serious: No
  Sender: FDA-Public Use
  Company Number: US-TEVA-2021-US-1867023

PATIENT
  Sex: Female

DRUGS (7)
  1. AUSTEDO [Suspect]
     Active Substance: DEUTETRABENAZINE
     Indication: HUNTINGTON^S DISEASE
     Dosage: 12 MILLIGRAM DAILY;
     Route: 048
     Dates: start: 20201214
  2. MULTIVITAMINS ADULTS ORAL TABLETS [Concomitant]
     Route: 048
  3. AUSTEDO [Suspect]
     Active Substance: DEUTETRABENAZINE
     Route: 048
  4. MELATONIN ORAL CAPSULES 3 MG [Concomitant]
     Route: 048
  5. AUSTEDO [Suspect]
     Active Substance: DEUTETRABENAZINE
     Route: 048
  6. CALCIUM +D3 ORAL TABLET 600+200 MG UNIT [Concomitant]
     Route: 048
  7. CITALOPRAM HYDROCHLORIDE ORAL TABLET 20 MG [Concomitant]
     Route: 048

REACTIONS (1)
  - Agitation [Unknown]
